FAERS Safety Report 8891401 (Version 1)
Quarter: 2012Q4

REPORT INFORMATION
  Report Type: Spontaneous
  Country: US (occurrence: None)
  Receive Date: 20121105
  Receipt Date: 20121105
  Transmission Date: 20130627
  Serious: Yes (Hospitalization)
  Sender: FDA-Public Use
  Company Number: None

PATIENT
  Age: 34 Year
  Sex: Female

DRUGS (1)
  1. GILENYA [Suspect]
     Indication: MS
     Route: 048
     Dates: start: 2012

REACTIONS (4)
  - Multiple sclerosis [None]
  - Monoplegia [None]
  - Blindness [None]
  - Unevaluable event [None]
